FAERS Safety Report 8337236-3 (Version None)
Quarter: 2012Q2

REPORT INFORMATION
  Report Type: 
  Country: None (occurrence: None)
  Receive Date: 20120504
  Receipt Date: 20120427
  Transmission Date: 20120825
  Serious: Yes (Other)
  Sender: FDA-Public Use
  Company Number: US-MYLANLABS-2012S1008932

PATIENT
  Age: 51 Year
  Sex: Male

DRUGS (1)
  1. NITRGLYCERIN TRANSDERMAL SYSTEM [Suspect]

REACTIONS (1)
  - CARDIAC ARREST [None]
